FAERS Safety Report 5669090-2 (Version None)
Quarter: 2008Q1

REPORT INFORMATION
  Report Type: 
  Country: None (occurrence: None)
  Receive Date: 20080317
  Receipt Date: 20080307
  Transmission Date: 20080703
  Serious: Yes (Hospitalization, Other)
  Sender: FDA-Public Use
  Company Number: US-JNJFOC-20080302334

PATIENT
  Sex: Female

DRUGS (6)
  1. DURAGESIC-100 [Suspect]
     Indication: SPINAL DISORDER
     Route: 062
  2. DURAGESIC-100 [Suspect]
     Indication: PAIN
     Route: 062
  3. FENTANYL TRANSDERMAL SYSTEM [Suspect]
     Indication: PAIN
     Route: 062
  4. ZOCOR [Concomitant]
     Indication: BLOOD CHOLESTEROL INCREASED
     Route: 048
  5. VICODIN [Concomitant]
     Indication: BREAKTHROUGH PAIN
     Route: 048
  6. ASPIRIN [Concomitant]
     Route: 048

REACTIONS (5)
  - CHEST PAIN [None]
  - DRUG INEFFECTIVE [None]
  - HYPERTENSION [None]
  - MUSCLE SPASMS [None]
  - THYROID DISORDER [None]
